FAERS Safety Report 24163381 (Version 1)
Quarter: 2024Q3

REPORT INFORMATION
  Report Type: Spontaneous
  Country: CN (occurrence: CN)
  Receive Date: 20240801
  Receipt Date: 20240801
  Transmission Date: 20241016
  Serious: Yes (Hospitalization)
  Sender: PURDUE
  Company Number: CN-NAPPMUNDI-GBR-2024-0118491

PATIENT
  Age: 69 Year
  Sex: Male
  Weight: 60 kg

DRUGS (1)
  1. OXYCODONE HYDROCHLORIDE [Suspect]
     Active Substance: OXYCODONE HYDROCHLORIDE
     Indication: Pain in extremity
     Dosage: 17 TABLET AT ONCE IN THE MORNING
     Route: 048
     Dates: start: 20240717, end: 20240717

REACTIONS (5)
  - Depressed level of consciousness [Recovered/Resolved]
  - Vomiting [Recovered/Resolved]
  - Respiratory rate decreased [Recovered/Resolved]
  - Dizziness [Recovered/Resolved]
  - Toxicity to various agents [Unknown]

NARRATIVE: CASE EVENT DATE: 20240717
